FAERS Safety Report 13105831 (Version 1)
Quarter: 2017Q1

REPORT INFORMATION
  Report Type: Spontaneous
  Country: US (occurrence: US)
  Receive Date: 20170111
  Receipt Date: 20170111
  Transmission Date: 20170428
  Serious: No
  Sender: FDA-Public Use
  Company Number: US-MEDA-2016120113

PATIENT
  Sex: Male
  Weight: 66 kg

DRUGS (1)
  1. FELBATOL [Suspect]
     Active Substance: FELBAMATE
     Indication: PETIT MAL EPILEPSY
     Dosage: 2 TABLETS QAM + AFTERNOON, 3 TABLETS QPM
     Route: 048
     Dates: start: 1991

REACTIONS (2)
  - Headache [Recovered/Resolved]
  - Drug dose omission [Not Recovered/Not Resolved]
